FAERS Safety Report 23520390 (Version 1)
Quarter: 2024Q1

REPORT INFORMATION
  Report Type: 
  Country: None (occurrence: None)
  Receive Date: 20240214
  Receipt Date: 20240214
  Transmission Date: 20240410
  Serious: No
  Sender: FDA-Public Use
  Company Number: CA-002147023-PHHY2019CA019170

PATIENT

DRUGS (15)
  1. XOLAIR [Suspect]
     Active Substance: OMALIZUMAB
     Dates: start: 20180517
  2. XOLAIR [Suspect]
     Active Substance: OMALIZUMAB
     Dates: start: 20181008
  3. XOLAIR [Suspect]
     Active Substance: OMALIZUMAB
     Dates: start: 20190409
  4. XOLAIR [Suspect]
     Active Substance: OMALIZUMAB
     Dates: start: 20190919
  5. XOLAIR [Suspect]
     Active Substance: OMALIZUMAB
     Dates: start: 20200114
  6. XOLAIR [Suspect]
     Active Substance: OMALIZUMAB
  7. XOLAIR [Suspect]
     Active Substance: OMALIZUMAB
  8. XOLAIR [Suspect]
     Active Substance: OMALIZUMAB
     Dosage: 300 MG, EVERY 4 WEEKS)
  9. XOLAIR [Suspect]
     Active Substance: OMALIZUMAB
     Dosage: 300 MG, EVERY 4 WEEKS)
  10. CETIRIZINE HYDROCHLORIDE [Suspect]
     Active Substance: CETIRIZINE HYDROCHLORIDE
     Dosage: 1 DOSAGE FORM, BID
     Dates: start: 201802
  11. CETIRIZINE HYDROCHLORIDE [Suspect]
     Active Substance: CETIRIZINE HYDROCHLORIDE
     Dosage: 40 MG, QD
  12. BENADRYL [Concomitant]
     Active Substance: DIPHENHYDRAMINE HYDROCHLORIDE
     Dates: start: 201510
  13. ZANTAC [Concomitant]
     Active Substance: RANITIDINE HYDROCHLORIDE
     Dates: start: 201801
  14. PREDNISONE [Concomitant]
     Active Substance: PREDNISONE
     Dates: start: 2016
  15. CETIRIZINE [Concomitant]
     Active Substance: CETIRIZINE HYDROCHLORIDE
     Dosage: 40 MG

REACTIONS (9)
  - Anaphylactic shock [None]
  - Skin lesion [None]
  - Eye oedema [None]
  - Wheezing [None]
  - Depressed mood [None]
  - Symptom recurrence [None]
  - Pruritus [None]
  - Malaise [None]
  - Urticaria [None]

NARRATIVE: CASE EVENT DATE: 20190101
